FAERS Safety Report 24055678 (Version 1)
Quarter: 2024Q3

REPORT INFORMATION
  Report Type: Spontaneous
  Country: US (occurrence: US)
  Receive Date: 20240705
  Receipt Date: 20240705
  Transmission Date: 20241017
  Serious: No
  Sender: AMGEN
  Company Number: US-AMGEN-USASP2024128507

PATIENT
  Age: 78 Year
  Sex: Male

DRUGS (6)
  1. PREDNISONE [Suspect]
     Active Substance: PREDNISONE
     Indication: Eczema
     Dosage: 40 MILLIGRAM, QD FOR 7 DAYS TO 14 DAYS
     Route: 048
  2. HUMAN IMMUNOGLOBULIN G [Suspect]
     Active Substance: HUMAN IMMUNOGLOBULIN G
     Indication: Myasthenic syndrome
     Dosage: 0.5 GRAM PER KILOGRAM, QD FOR 4 DAYS
     Route: 042
  3. TRIAMCINOLONE [Concomitant]
     Active Substance: TRIAMCINOLONE
     Indication: Eczema
     Dosage: 0.1 PERCENT
  4. CLOBETASOL [Concomitant]
     Active Substance: CLOBETASOL
     Indication: Eczema
     Dosage: 0.05 PERCENT
     Route: 061
  5. DUPILUMAB [Concomitant]
     Active Substance: DUPILUMAB
     Indication: Eczema
     Dosage: 600 MILLIGRAM
     Route: 058
  6. DUPILUMAB [Concomitant]
     Active Substance: DUPILUMAB
     Dosage: 300 MILLIGRAM
     Route: 058

REACTIONS (1)
  - Therapy non-responder [Unknown]
